FAERS Safety Report 17370155 (Version 1)
Quarter: 2020Q1

REPORT INFORMATION
  Report Type: Spontaneous
  Country: FR (occurrence: FR)
  Receive Date: 20200205
  Receipt Date: 20200205
  Transmission Date: 20200409
  Serious: Yes (Hospitalization)
  Sender: FDA-Public Use
  Company Number: FR-TEVA-2020-FR-1181476

PATIENT
  Age: 93 Year
  Sex: Female
  Weight: 51.7 kg

DRUGS (7)
  1. KARDEGIC [Concomitant]
     Active Substance: ASPIRIN DL-LYSINE
  2. FLUVASTATINE BASE [Concomitant]
     Active Substance: FLUVASTATIN SODIUM
  3. DAFALGAN [Concomitant]
     Active Substance: ACETAMINOPHEN
  4. PREDNISONE. [Suspect]
     Active Substance: PREDNISONE
     Indication: PAIN
     Route: 048
     Dates: end: 20191212
  5. BREXIN (PIROXICAM BETADEX) [Suspect]
     Active Substance: PIROXICAM BETADEX
     Indication: SPINAL OSTEOARTHRITIS
     Dosage: 1 DOSAGE FORM
     Route: 048
     Dates: start: 20191212, end: 20200107
  6. ATENOLOL. [Concomitant]
     Active Substance: ATENOLOL
  7. DEDROGYL 15 MG/ 100 ML, SOLUTION BUVABLE EN GOUTTES [Concomitant]
     Active Substance: CALCIFEDIOL

REACTIONS (1)
  - Confusional state [Recovered/Resolved]

NARRATIVE: CASE EVENT DATE: 201912
